FAERS Safety Report 22346314 (Version 1)
Quarter: 2023Q2

REPORT INFORMATION
  Report Type: Spontaneous
  Country: US (occurrence: US)
  Receive Date: 20230519
  Receipt Date: 20230519
  Transmission Date: 20230721
  Serious: No
  Sender: FDA-Public Use
  Company Number: NORTMC-16828

PATIENT
  Sex: Male
  Weight: 93.878 kg

DRUGS (1)
  1. HYDROXYZINE HYDROCHLORIDE [Suspect]
     Active Substance: HYDROXYZINE HYDROCHLORIDE
     Indication: Pruritus
     Dosage: 2 DF, Q6H
     Route: 048

REACTIONS (1)
  - Drug ineffective [Unknown]
